FAERS Safety Report 9029473 (Version 2)
Quarter: 2013Q3

REPORT INFORMATION
  Report Type: Spontaneous
  Country: JP (occurrence: JP)
  Receive Date: 20130125
  Receipt Date: 20130710
  Transmission Date: 20140515
  Serious: Yes (Hospitalization)
  Sender: FDA-Public Use
  Company Number: JP-SANOFI-AVENTIS-2013SA004943

PATIENT
  Age: 66 Year
  Sex: Male
  Weight: 57 kg

DRUGS (16)
  1. CAPECITABINE [Suspect]
     Indication: RECTAL CANCER
     Dosage: TOTAL 4 CYCLES
     Route: 048
     Dates: start: 20120222, end: 20120308
  2. CAPECITABINE [Suspect]
     Indication: RECTAL CANCER
     Route: 048
     Dates: start: 20120319, end: 20120402
  3. CAPECITABINE [Suspect]
     Indication: RECTAL CANCER
     Route: 048
     Dates: start: 20120409, end: 20120423
  4. CAPECITABINE [Suspect]
     Indication: RECTAL CANCER
     Route: 048
     Dates: start: 20120507, end: 20120521
  5. ELPLAT [Suspect]
     Indication: RECTAL CANCER
     Route: 041
     Dates: start: 20120222, end: 20120222
  6. ELPLAT [Suspect]
     Indication: RECTAL CANCER
     Route: 041
     Dates: start: 20120319, end: 20120319
  7. ELPLAT [Suspect]
     Indication: RECTAL CANCER
     Route: 041
     Dates: start: 20120409, end: 20120409
  8. ELPLAT [Suspect]
     Indication: RECTAL CANCER
     Route: 041
     Dates: start: 20120507, end: 20120507
  9. AVASTIN [Suspect]
     Indication: RECTAL CANCER
     Dosage: TOTAL 4 CYCLES
     Route: 041
     Dates: start: 20120222, end: 20120222
  10. AVASTIN [Suspect]
     Indication: RECTAL CANCER
     Route: 041
     Dates: start: 20120319, end: 20120319
  11. AVASTIN [Suspect]
     Indication: RECTAL CANCER
     Route: 041
     Dates: start: 20120409, end: 20120409
  12. AVASTIN [Suspect]
     Indication: RECTAL CANCER
     Route: 041
     Dates: start: 20120507, end: 20120507
  13. GRANISETRON [Concomitant]
     Dates: start: 20120222, end: 20120507
  14. DECADRON [Concomitant]
     Dates: start: 20120222, end: 20120507
  15. PREDONINE [Concomitant]
     Dates: start: 20120525, end: 20120621
  16. BANAN [Concomitant]
     Dates: start: 20120525, end: 20120621

REACTIONS (1)
  - Interstitial lung disease [Recovered/Resolved]
